FAERS Safety Report 17205083 (Version 1)
Quarter: 2020Q1

REPORT INFORMATION
  Report Type: Spontaneous
  Country: US (occurrence: US)
  Receive Date: 20191226
  Receipt Date: 20191226
  Transmission Date: 20200409
  Serious: Yes (Other)
  Sender: FDA-Public Use
  Company Number: None

PATIENT
  Age: 64 Year
  Sex: Female

DRUGS (5)
  1. METHOTREXATE TABLET 2.5 MG [Concomitant]
  2. HUMIRA [Suspect]
     Active Substance: ADALIMUMAB
     Indication: PSORIATIC ARTHROPATHY
     Dosage: ?          OTHER FREQUENCY:EVERY OTHER WEEK;?
     Route: 058
     Dates: start: 20190707
  3. CELEBREX CAP 200 MG [Concomitant]
  4. LEVOTHYROXIN TAB 75 MCG [Concomitant]
  5. OXYBUTYNIN TAB 5MG [Concomitant]

REACTIONS (4)
  - Loss of personal independence in daily activities [None]
  - Pain [None]
  - Psoriatic arthropathy [None]
  - Therapy cessation [None]

NARRATIVE: CASE EVENT DATE: 20191226
